FAERS Safety Report 5813535-1 (Version None)
Quarter: 2008Q3

REPORT INFORMATION
  Report Type: 
  Country: None (occurrence: None)
  Receive Date: 20080711
  Receipt Date: 20080701
  Transmission Date: 20090109
  Serious: Yes (Death, Hospitalization)
  Sender: FDA-Public Use
  Company Number: 2008AL003565

PATIENT
  Age: 77 Year
  Sex: Male
  Weight: 99.3377 kg

DRUGS (2)
  1. DIGOXIN [Suspect]
     Indication: CARDIAC FAILURE CONGESTIVE
     Dosage: PO; MANY YEARS
     Route: 048
  2. COREG [Concomitant]

REACTIONS (7)
  - ASTHENIA [None]
  - CARDIAC DISORDER [None]
  - DIZZINESS [None]
  - DYSPNOEA [None]
  - NAUSEA [None]
  - PRESYNCOPE [None]
  - SKIN DISCOLOURATION [None]
